FAERS Safety Report 7178407-1 (Version None)
Quarter: 2010Q4

REPORT INFORMATION
  Report Type: 
  Country: None (occurrence: None)
  Receive Date: 20101220
  Receipt Date: 20101215
  Transmission Date: 20110411
  Serious: Yes (Other)
  Sender: FDA-Public Use
  Company Number: CH-ABBOTT-10P-151-0691886-00

PATIENT
  Age: 14 Year
  Sex: Male

DRUGS (2)
  1. KALETRA [Suspect]
     Indication: PRODUCT USED FOR UNKNOWN INDICATION
     Dates: start: 20100905, end: 20101004
  2. EMTRICITABINE W/TENOFOVIR [Interacting]
     Indication: PRODUCT USED FOR UNKNOWN INDICATION
     Dates: start: 20100905, end: 20101004

REACTIONS (2)
  - DRUG INTERACTION [None]
  - VISUAL IMPAIRMENT [None]
